FAERS Safety Report 6840174-6 (Version None)
Quarter: 2010Q2

REPORT INFORMATION
  Report Type: 
  Country: None (occurrence: None)
  Receive Date: 20100629
  Receipt Date: 20100312
  Transmission Date: 20101027
  Serious: No
  Sender: FDA-Public Use
  Company Number: US-WYE-H14108410

PATIENT
  Age: 49 Year
  Sex: Female
  Weight: 93.07 kg

DRUGS (5)
  1. PRISTIQ [Suspect]
     Indication: DEPRESSION
     Dosage: 50 MG 1X PER 1 DAY, ORAL
     Route: 048
     Dates: start: 20091201, end: 20100201
  2. OXYCODONE HCL [Concomitant]
  3. ZANAFLEX [Concomitant]
  4. ALPRAZOLAM [Concomitant]
  5. TRAZODONE HCL [Concomitant]

REACTIONS (3)
  - BLOOD PRESSURE INCREASED [None]
  - CONDITION AGGRAVATED [None]
  - WEIGHT INCREASED [None]
